FAERS Safety Report 10250952 (Version 1)
Quarter: 2014Q2

REPORT INFORMATION
  Report Type: Spontaneous
  Country: GB (occurrence: GB)
  Receive Date: 20140620
  Receipt Date: 20140620
  Transmission Date: 20141212
  Serious: Yes (Hospitalization)
  Sender: FDA-Public Use
  Company Number: GB-TEVA-488392ISR

PATIENT
  Age: 52 Year
  Sex: Female

DRUGS (4)
  1. CITALOPRAM [Suspect]
     Indication: SCHIZOPHRENIA, PARANOID TYPE
     Dosage: 40 MILLIGRAM DAILY;
     Route: 048
  2. QUETIAPINE [Suspect]
     Indication: SCHIZOPHRENIA, PARANOID TYPE
     Dosage: 200 MILLIGRAM DAILY;
     Route: 048
  3. CLOZARIL [Suspect]
     Indication: SCHIZOPHRENIA, PARANOID TYPE
     Route: 048
     Dates: start: 20061031
  4. VALPROATE SODIUM [Suspect]
     Indication: SCHIZOPHRENIA, PARANOID TYPE
     Route: 048

REACTIONS (5)
  - Insomnia [Unknown]
  - Intentional overdose [Recovered/Resolved]
  - Neutrophil count increased [Recovered/Resolved]
  - Platelet count increased [Unknown]
  - White blood cell count increased [Recovered/Resolved]
